FAERS Safety Report 9540042 (Version 1)
Quarter: 2013Q2

REPORT INFORMATION
  Report Type: Spontaneous
  Country: US (occurrence: None)
  Receive Date: 20130521
  Receipt Date: 20130521
  Transmission Date: 20140414
  Serious: No
  Sender: FDA-Public Use
  Company Number: 1000044180

PATIENT
  Age: 72 Year
  Sex: Male

DRUGS (18)
  1. TUDORZA PRESSAIR (ACLIDINIUM BROMIDE) (400 MICROGRAM, POWDER) [Suspect]
     Indication: DYSPNOEA
     Dosage: 400 MCG BID (400 MCG, 2 IN 1 D) ,  ORAL
     Dates: start: 201303
  2. NOVOLOG (INSULIN ASPART) (INSULIN ASPART) [Concomitant]
  3. SYMICORT (BUDESONIDE W/ [Concomitant]
  4. WARFARIN (WARFARIN (WARFARIN) [Concomitant]
  5. PLAVIS (CLOPIDOGREL BISULFATE) (GLOPIDOGREL BISULFATE) [Concomitant]
  6. ALLOPURINOL (ALLOPURINOL) (ALLOPURINOL) [Concomitant]
  7. ASPIRIN (ACETYLSALICYLIC ACID) (ACETYLSALICYLIC ACID) [Concomitant]
  8. ZOCOR (SIMVASTATIN) (SIMVASTATIN) [Concomitant]
  9. ESCITALOPRAM (ESCITALOPRAM OXALATE) (ESCITALOPRAM OXALATE) [Concomitant]
  10. FISH OIL (FISH OIL) (FISH OIL) [Concomitant]
  11. EQUALTE ALLERGY AND SINUS (DIPHENHYDRAMINE, PHENYLEPHRINE) (DIPHENHYDRAMINE, PHENYLEPHRINE) [Concomitant]
  12. VITAMIN D (VITAMIN D) (VITAMIN D) [Concomitant]
  13. METFORMIN (METFORMIN) (METFORMIN) [Concomitant]
  14. AMLODIPINE (AMLODIPINE) (AMLODIPINE) [Concomitant]
  15. EQUATE ARTHRITIS (ACETAMINOPHEN) (ACETAMINOPHEN) [Concomitant]
  16. FUROSEMIDE [Concomitant]
  17. RAMIPRIL (RAMIPRIL) (RAMIPRIL) [Concomitant]
  18. COREG (CARVEDILOL) (CARVEDILOL) [Concomitant]

REACTIONS (2)
  - Pruritus generalised [None]
  - Off label use [None]
